FAERS Safety Report 8225359-9 (Version None)
Quarter: 2012Q1

REPORT INFORMATION
  Report Type: 
  Country: None (occurrence: None)
  Receive Date: 20120321
  Receipt Date: 20120315
  Transmission Date: 20120608
  Serious: Yes (Hospitalization)
  Sender: FDA-Public Use
  Company Number: US-VIIV HEALTHCARE LIMITED-Z0014687A

PATIENT
  Age: 57 Year
  Sex: Female
  Weight: 80.1 kg

DRUGS (2)
  1. GSK1349572 [Suspect]
     Indication: HIV INFECTION
     Dosage: 1TAB PER DAY
     Route: 048
     Dates: start: 20110412
  2. ABACAVIR SULFATE/LAMIVUDINE [Suspect]
     Indication: HIV INFECTION
     Dosage: 1TAB PER DAY
     Route: 048
     Dates: start: 20110412

REACTIONS (1)
  - CEREBROVASCULAR ACCIDENT [None]
